FAERS Safety Report 14432719 (Version 3)
Quarter: 2018Q3

REPORT INFORMATION
  Report Type: Spontaneous
  Country: US (occurrence: US)
  Receive Date: 20180124
  Receipt Date: 20180720
  Transmission Date: 20181010
  Serious: Yes (Other)
  Sender: FDA-Public Use
  Company Number: US-BAYER-2018-008207

PATIENT
  Age: 68 Year
  Sex: Male

DRUGS (16)
  1. DEFERASIROX [Concomitant]
     Active Substance: DEFERASIROX
     Indication: HAEMOCHROMATOSIS
  2. ATORVASTATIN CALCIUM. [Concomitant]
     Active Substance: ATORVASTATIN CALCIUM
     Dosage: 80 MG, QD
     Route: 048
  3. RANITIDINE HYDROCHLORIDE. [Concomitant]
     Active Substance: RANITIDINE HYDROCHLORIDE
     Dosage: 150 MG
     Route: 048
  4. PREDNISONE. [Concomitant]
     Active Substance: PREDNISONE
     Dosage: 10 MG, DAILY
  5. XOFIGO [Suspect]
     Active Substance: RADIUM RA-223 DICHLORIDE
     Indication: PROSTATE CANCER STAGE IV
     Dosage: 1.49 MICROCURIE/KG
     Route: 042
     Dates: start: 20171214
  6. COLACE [Concomitant]
     Active Substance: DOCUSATE SODIUM
     Indication: CONSTIPATION
     Dosage: DAILY
  7. LUPRON [Concomitant]
     Active Substance: LEUPROLIDE ACETATE
     Dosage: 7.5 MG
     Route: 030
  8. XOFIGO [Suspect]
     Active Substance: RADIUM RA-223 DICHLORIDE
     Indication: METASTASES TO SPINE
     Dosage: 1.49 MICROCURIE/KG
     Route: 042
     Dates: start: 20180111
  9. ABIRATERONE ACETATE. [Concomitant]
     Active Substance: ABIRATERONE ACETATE
     Dosage: 1000 MG, DAILY
     Route: 048
  10. XTANDI [Concomitant]
     Active Substance: ENZALUTAMIDE
     Dosage: 4 DF, QD
     Route: 048
  11. DEFEROXAMINE [Concomitant]
     Active Substance: DEFEROXAMINE\DEFEROXAMINE MESYLATE
     Indication: HAEMOCHROMATOSIS
  12. CALCICHEW [Concomitant]
     Active Substance: CALCIUM CARBONATE
     Dosage: 500(1250), 1 BID
     Route: 048
  13. XGEVA [Concomitant]
     Active Substance: DENOSUMAB
     Dosage: 120 MG, Q4WK
     Route: 058
  14. MIRALAX [Concomitant]
     Active Substance: POLYETHYLENE GLYCOL 3350
     Indication: CONSTIPATION
     Dosage: DAILY
  15. CENTRUM SILVER [Concomitant]
     Active Substance: MINERALS\VITAMINS
     Dosage: 400?250 MCG, 1 DAILY
     Route: 048
  16. ENZALUTAMIDE [Concomitant]
     Active Substance: ENZALUTAMIDE

REACTIONS (14)
  - Conjunctival haemorrhage [None]
  - Dyspnoea [None]
  - Cataract [None]
  - Corrective lens user [None]
  - Fatigue [None]
  - Thrombocytopenia [Not Recovered/Not Resolved]
  - Weight decreased [None]
  - Bone marrow infiltration [None]
  - Leukopenia [Not Recovered/Not Resolved]
  - Pancytopenia [Not Recovered/Not Resolved]
  - Prostatic specific antigen increased [None]
  - Prostate cancer metastatic [None]
  - Cancer pain [None]
  - Eye colour change [None]

NARRATIVE: CASE EVENT DATE: 20180228
